FAERS Safety Report 7458500-6 (Version None)
Quarter: 2011Q2

REPORT INFORMATION
  Report Type: 
  Country: None (occurrence: None)
  Receive Date: 20110504
  Receipt Date: 20110404
  Transmission Date: 20111010
  Serious: No
  Sender: FDA-Public Use
  Company Number: US-BAYER-2011-029064

PATIENT
  Age: 47 Year
  Sex: Female

DRUGS (2)
  1. VITAMIN E [Concomitant]
  2. NATAZIA [Suspect]
     Indication: CONTRACEPTION
     Dosage: UNK
     Dates: start: 20101101

REACTIONS (5)
  - AMENORRHOEA [None]
  - STRESS [None]
  - MENSTRUATION DELAYED [None]
  - DYSMENORRHOEA [None]
  - HEADACHE [None]
